FAERS Safety Report 14280329 (Version 1)
Quarter: 2017Q4

REPORT INFORMATION
  Report Type: Spontaneous
  Country: US (occurrence: US)
  Receive Date: 20171212
  Receipt Date: 20171212
  Transmission Date: 20180321
  Serious: No
  Sender: FDA-Public Use
  Company Number: None

PATIENT
  Sex: Female

DRUGS (2)
  1. DYAZIDE [Suspect]
     Active Substance: HYDROCHLOROTHIAZIDE\TRIAMTERENE
  2. PROCARDIA [Suspect]
     Active Substance: NIFEDIPINE

REACTIONS (3)
  - Blood pressure increased [None]
  - Anxiety [None]
  - Muscle spasms [None]
